FAERS Safety Report 8372879-2 (Version None)
Quarter: 2012Q2

REPORT INFORMATION
  Report Type: 
  Country: None (occurrence: None)
  Receive Date: 20120521
  Receipt Date: 20120510
  Transmission Date: 20120825
  Serious: Yes (Other)
  Sender: FDA-Public Use
  Company Number: JP-SANOFI-AVENTIS-2012SA035492

PATIENT
  Age: 67 Year
  Sex: Female

DRUGS (3)
  1. ZOLPIDEM [Suspect]
     Route: 048
  2. SENNA-MINT WAF [Concomitant]
     Route: 048
  3. DAIKENTYUTO [Concomitant]
     Route: 048

REACTIONS (1)
  - LOSS OF CONSCIOUSNESS [None]
